FAERS Safety Report 25698978 (Version 1)
Quarter: 2025Q3

REPORT INFORMATION
  Report Type: Spontaneous
  Country: US (occurrence: US)
  Receive Date: 20250819
  Receipt Date: 20250819
  Transmission Date: 20251020
  Serious: No
  Sender: JOHNSON AND JOHNSON
  Company Number: US-JNJFOC-20250815806

PATIENT
  Sex: Male

DRUGS (2)
  1. RISPERIDONE [Suspect]
     Active Substance: RISPERIDONE
     Indication: Product used for unknown indication
     Dates: start: 2014
  2. RISPERIDONE [Suspect]
     Active Substance: RISPERIDONE
     Dates: end: 202504

REACTIONS (2)
  - Gynaecomastia [Unknown]
  - Breast discharge [Unknown]
